FAERS Safety Report 23119083 (Version 3)
Quarter: 2023Q4

REPORT INFORMATION
  Report Type: Report from Study
  Country: FR (occurrence: FR)
  Receive Date: 20231028
  Receipt Date: 20231108
  Transmission Date: 20240110
  Serious: Yes (Hospitalization)
  Sender: FDA-Public Use
  Company Number: FR-ABBVIE-5455255

PATIENT
  Age: 63 Year
  Sex: Male

DRUGS (2)
  1. CARBIDOPA\LEVODOPA [Suspect]
     Active Substance: CARBIDOPA\LEVODOPA
     Indication: Parkinson^s disease
     Route: 050
     Dates: start: 20211103
  2. CARBIDOPA\LEVODOPA [Suspect]
     Active Substance: CARBIDOPA\LEVODOPA

REACTIONS (7)
  - Pneumonia [Unknown]
  - Mobility decreased [Unknown]
  - Asthenia [Unknown]
  - Intussusception [Unknown]
  - Cardiac disorder [Unknown]
  - Off label use [Unknown]
  - Medical device removal [Unknown]

NARRATIVE: CASE EVENT DATE: 20231001
